FAERS Safety Report 13645365 (Version 1)
Quarter: 2017Q2

REPORT INFORMATION
  Report Type: Spontaneous
  Country: US (occurrence: US)
  Receive Date: 20170612
  Receipt Date: 20170612
  Transmission Date: 20170830
  Serious: No
  Sender: FDA-Public Use
  Company Number: US-009507513-1706USA000985

PATIENT
  Sex: Female

DRUGS (1)
  1. FOLLISTIM [Suspect]
     Active Substance: FOLLITROPIN
     Indication: ANOVULATORY CYCLE
     Dosage: UNKNOWN
     Route: 058

REACTIONS (3)
  - Product quality issue [Unknown]
  - Therapeutic response decreased [Unknown]
  - Medical observation abnormal [Unknown]
